FAERS Safety Report 6899306-6 (Version None)
Quarter: 2010Q3

REPORT INFORMATION
  Report Type: 
  Country: None (occurrence: None)
  Receive Date: 20100802
  Receipt Date: 20090421
  Transmission Date: 20110219
  Serious: No
  Sender: FDA-Public Use
  Company Number: US-PFIZER INC-2007094401

PATIENT
  Sex: Female
  Weight: 81.4 kg

DRUGS (3)
  1. LYRICA [Suspect]
     Indication: PAIN
     Dosage: 75 MG, 2X/DAY
     Dates: start: 20071001
  2. SIMVASTATIN [Concomitant]
  3. TAMOXIFEN CITRATE [Concomitant]

REACTIONS (7)
  - DEPRESSION [None]
  - DRUG INEFFECTIVE [None]
  - GASTROENTERITIS VIRAL [None]
  - JOINT SWELLING [None]
  - MALAISE [None]
  - PAIN [None]
  - WEIGHT INCREASED [None]
